FAERS Safety Report 8495557-8 (Version None)
Quarter: 2012Q3

REPORT INFORMATION
  Report Type: 
  Country: None (occurrence: None)
  Receive Date: 20120709
  Receipt Date: 20120628
  Transmission Date: 20120928
  Serious: Yes (Other)
  Sender: FDA-Public Use
  Company Number: AU-ROCHE-1050394

PATIENT
  Sex: Male
  Weight: 94 kg

DRUGS (4)
  1. ACETAMINOPHEN [Concomitant]
     Dates: start: 20110127
  2. PREDNEFRIN FORTE [Concomitant]
     Dosage: 1 DROP
     Dates: start: 20120120
  3. MAGNESIUM SULFATE [Concomitant]
  4. VEMURAFENIB [Suspect]
     Indication: METASTATIC MALIGNANT MELANOMA
     Dosage: DATE OF LAST DOSE PRIOR TO EXCISION: 27/JUN/2012
     Route: 048
     Dates: start: 20110131, end: 20120628

REACTIONS (1)
  - MALIGNANT MELANOMA IN SITU [None]
